FAERS Safety Report 18687085 (Version 1)
Quarter: 2020Q4

REPORT INFORMATION
  Report Type: Other
  Country: US (occurrence: US)
  Receive Date: 20201231
  Receipt Date: 20201231
  Transmission Date: 20210114
  Serious: Yes (Other)
  Sender: FDA-Public Use
  Company Number: US-ROCHE-2739065

PATIENT
  Sex: Female
  Weight: 74 kg

DRUGS (4)
  1. KADCYLA [Suspect]
     Active Substance: ADO-TRASTUZUMAB EMTANSINE
     Dosage: ONGOING:NO
     Route: 042
     Dates: start: 202005, end: 202008
  2. HERCEPTIN [Suspect]
     Active Substance: TRASTUZUMAB
     Indication: PRODUCT USED FOR UNKNOWN INDICATION
     Dosage: ONGOING:UNKNOWN
     Route: 065
  3. KADCYLA [Suspect]
     Active Substance: ADO-TRASTUZUMAB EMTANSINE
     Dosage: ONGOING:YES
     Route: 042
     Dates: start: 20200901
  4. KADCYLA [Suspect]
     Active Substance: ADO-TRASTUZUMAB EMTANSINE
     Indication: HER2 POSITIVE BREAST CANCER
     Dosage: ONGOING:NO
     Route: 042
     Dates: start: 2012, end: 2014

REACTIONS (6)
  - Pneumonitis [Recovered/Resolved]
  - Platelet count decreased [Unknown]
  - Amnesia [Not Recovered/Not Resolved]
  - Pericardial effusion [Recovered/Resolved]
  - Neuropathy peripheral [Unknown]
  - Syncope [Unknown]

NARRATIVE: CASE EVENT DATE: 2014
